FAERS Safety Report 4686360-5 (Version None)
Quarter: 2005Q2

REPORT INFORMATION
  Report Type: 
  Country: None (occurrence: None)
  Receive Date: 20050606
  Receipt Date: 20050523
  Transmission Date: 20051028
  Serious: Yes (Life-Threatening, Hospitalization)
  Sender: FDA-Public Use
  Company Number: 2005078489

PATIENT
  Age: 66 Year
  Sex: Male

DRUGS (14)
  1. ATARAX [Suspect]
     Indication: ILL-DEFINED DISORDER
     Dosage: ORAL
     Route: 048
     Dates: start: 20050310
  2. PANTOPRAZOLE SODIUM [Suspect]
     Indication: ILL-DEFINED DISORDER
     Dosage: ORAL
     Route: 048
     Dates: start: 20050310
  3. ACETAMINOPHEN [Suspect]
     Indication: ILL-DEFINED DISORDER
     Dosage: ORAL
     Route: 048
     Dates: start: 20050223
  4. IOPAMIDOL [Suspect]
     Indication: ILL-DEFINED DISORDER
     Dosage: INTRAVENOUS
     Route: 042
     Dates: start: 20050223
  5. MICROPAQUE ^GUERBET^ (BARIUM SULFATE) [Suspect]
     Indication: ILL-DEFINED DISORDER
     Dosage: ORAL
     Route: 048
     Dates: start: 20050322
  6. ALLOPURINOL [Suspect]
     Indication: ILL-DEFINED DISORDER
     Dosage: ORAL
     Route: 048
     Dates: start: 20050223
  7. PRAVASTATIN [Concomitant]
  8. COVERSYL (PERINDOPRIL) [Concomitant]
  9. EDUCTYL (POTASSIUM BITARTRATE, SODIUM BICARBONATE) [Concomitant]
  10. FENTANYL [Concomitant]
  11. ENOXAPARIN SODIUM [Concomitant]
  12. PREDNISONE [Concomitant]
  13. MORPHINE SULFATE [Concomitant]
  14. NUTRISON (CARBOHYDRATES NOS, LIPIDS NOS, PROTEINS NOS) [Concomitant]

REACTIONS (3)
  - ATRIAL FIBRILLATION [None]
  - PLEURAL EFFUSION [None]
  - TOXIC EPIDERMAL NECROLYSIS [None]
